FAERS Safety Report 12990709 (Version 4)
Quarter: 2016Q4

REPORT INFORMATION
  Report Type: Spontaneous
  Country: JP (occurrence: JP)
  Receive Date: 20161201
  Receipt Date: 20161221
  Transmission Date: 20170207
  Serious: Yes (Death)
  Sender: FDA-Public Use
  Company Number: JP-JNJFOC-20161130788

PATIENT
  Age: 60 Year
  Sex: Male

DRUGS (6)
  1. XEPLION [Suspect]
     Active Substance: PALIPERIDONE PALMITATE
     Indication: SCHIZOPHRENIA
     Route: 030
     Dates: start: 20161101, end: 20161101
  2. QUETIAPINE. [Suspect]
     Active Substance: QUETIAPINE
     Indication: SCHIZOPHRENIA
     Route: 048
     Dates: end: 20161116
  3. ZYPREXA [Suspect]
     Active Substance: OLANZAPINE
     Indication: SCHIZOPHRENIA
     Route: 048
     Dates: end: 20161116
  4. VALPROATE SODIUM. [Suspect]
     Active Substance: VALPROATE SODIUM
     Indication: SCHIZOPHRENIA
     Route: 048
     Dates: end: 20161116
  5. NEOPERIDOL [Suspect]
     Active Substance: HALOPERIDOL
     Indication: SCHIZOPHRENIA
     Route: 030
     Dates: end: 201611
  6. RISPERDAL [Suspect]
     Active Substance: RISPERIDONE
     Indication: SCHIZOPHRENIA
     Route: 048
     Dates: end: 20161102

REACTIONS (1)
  - Pneumonia [Fatal]

NARRATIVE: CASE EVENT DATE: 20161117
